FAERS Safety Report 8475786-X (Version None)
Quarter: 2012Q2

REPORT INFORMATION
  Report Type: 
  Country: None (occurrence: None)
  Receive Date: 20120628
  Receipt Date: 20120625
  Transmission Date: 20120825
  Serious: No
  Sender: FDA-Public Use
  Company Number: US-TEVA-343890USA

PATIENT
  Sex: Female
  Weight: 56.75 kg

DRUGS (3)
  1. LORAZEPAM [Concomitant]
     Indication: ANXIETY
  2. PLAN B ONE-STEP [Suspect]
     Indication: POST COITAL CONTRACEPTION
     Dosage: 1.5 MILLIGRAM;
     Route: 048
     Dates: start: 20120616, end: 20120616
  3. ZYRTEC [Concomitant]
     Indication: HYPERSENSITIVITY

REACTIONS (4)
  - PALPITATIONS [None]
  - FREQUENT BOWEL MOVEMENTS [None]
  - NAUSEA [None]
  - DIZZINESS [None]
